FAERS Safety Report 21810626 (Version 1)
Quarter: 2023Q1

REPORT INFORMATION
  Report Type: Report from Study
  Country: US (occurrence: US)
  Receive Date: 20230103
  Receipt Date: 20230103
  Transmission Date: 20230417
  Serious: No
  Sender: FDA-Public Use
  Company Number: US-ABBVIE-4210521

PATIENT
  Sex: Female

DRUGS (2)
  1. SKYRIZI [Suspect]
     Active Substance: RISANKIZUMAB-RZAA
     Indication: Psoriasis
     Dosage: WEEK 0 FIRST AND LAST ADMIN DATE: 21 SEP 2022
     Route: 058
  2. SKYRIZI [Suspect]
     Active Substance: RISANKIZUMAB-RZAA
     Dosage: FIRST AND LAST ADMIN DATE: OCT 2022, WEEK 4, 12 WEEKS THEREAFTER
     Route: 058

REACTIONS (5)
  - Muscle atrophy [Unknown]
  - Pulmonary congestion [Unknown]
  - Psoriasis [Unknown]
  - Wheezing [Unknown]
  - Headache [Unknown]

NARRATIVE: CASE EVENT DATE: 20220101
